FAERS Safety Report 4489858-8 (Version None)
Quarter: 2004Q4

REPORT INFORMATION
  Report Type: 
  Country: None (occurrence: None)
  Receive Date: 20041101
  Receipt Date: 20041013
  Transmission Date: 20050328
  Serious: Yes (Hospitalization, Other)
  Sender: FDA-Public Use
  Company Number: JP-MERCK-0410USA02598

PATIENT
  Age: 1 Day
  Sex: Male
  Weight: 1 kg

DRUGS (2)
  1. INDOCIN I.V. [Suspect]
     Indication: PATENT DUCTUS ARTERIOSUS
     Route: 051
     Dates: start: 20040508, end: 20040508
  2. INDOCIN I.V. [Suspect]
     Route: 051
     Dates: start: 20040508, end: 20040509

REACTIONS (3)
  - INTRAVENTRICULAR HAEMORRHAGE NEONATAL [None]
  - PERITONEAL DIALYSIS [None]
  - RENAL IMPAIRMENT [None]
